FAERS Safety Report 4953117-7 (Version None)
Quarter: 2006Q1

REPORT INFORMATION
  Report Type: 
  Country: None (occurrence: None)
  Receive Date: 20060321
  Receipt Date: 20060307
  Transmission Date: 20060701
  Serious: Yes (Hospitalization)
  Sender: FDA-Public Use
  Company Number: 190763

PATIENT
  Age: 61 Year
  Sex: Female
  Weight: 89.8122 kg

DRUGS (22)
  1. AVONEX [Suspect]
     Indication: MULTIPLE SCLEROSIS
     Dosage: 30 UG; QW; IM
     Route: 030
     Dates: start: 19950101
  2. AVONEX [Suspect]
     Indication: MULTIPLE SCLEROSIS
     Dosage: 30 UG; QW; IM
     Route: 030
  3. WELLBUTRIN [Concomitant]
  4. COZAAR [Concomitant]
  5. TRIMETHOBENZAMIDE [Concomitant]
  6. HYDROCODONE [Concomitant]
  7. PRAVACHOL [Concomitant]
  8. GLIPIZIDE [Concomitant]
  9. GLUCOPHAGE [Concomitant]
  10. SYNTHROID [Concomitant]
  11. TOPROL-XL [Concomitant]
  12. ZYRTEC [Concomitant]
  13. LIDOCAINE [Concomitant]
  14. APEXICON [Concomitant]
  15. AMITRIPTYLINE [Concomitant]
  16. FOLIC ACID [Concomitant]
  17. METHOTREXATE [Concomitant]
  18. ACTOS [Concomitant]
  19. ASPIRIN [Concomitant]
  20. SENNA [Concomitant]
  21. VITAMINS [Concomitant]
  22. IRON [Concomitant]

REACTIONS (11)
  - BACK DISORDER [None]
  - BACK PAIN [None]
  - CEREBROVASCULAR ACCIDENT [None]
  - DIFFICULTY IN WALKING [None]
  - DYSSTASIA [None]
  - INCONTINENCE [None]
  - INFLUENZA LIKE ILLNESS [None]
  - NOSOCOMIAL INFECTION [None]
  - PAIN [None]
  - SPEECH DISORDER [None]
  - STAPHYLOCOCCAL INFECTION [None]
